FAERS Safety Report 4417260-3 (Version None)
Quarter: 2004Q3

REPORT INFORMATION
  Report Type: 
  Country: None (occurrence: None)
  Receive Date: 20040802
  Receipt Date: 20040720
  Transmission Date: 20050211
  Serious: Yes (Death)
  Sender: FDA-Public Use
  Company Number: 2004049251

PATIENT
  Age: 52 Year
  Sex: Male
  Weight: 77.1115 kg

DRUGS (3)
  1. NEURONTIN [Suspect]
     Indication: ILL-DEFINED DISORDER
     Dosage: (800 MG),
  2. VICODIN [Suspect]
     Indication: BACK PAIN
     Dosage: (1 IN 2 D),
  3. ANTIDEPRESSANTS (ANTIDEPRESSANTS) [Concomitant]

REACTIONS (5)
  - BACK INJURY [None]
  - GUN SHOT WOUND [None]
  - HEAD INJURY [None]
  - INTENTIONAL SELF-INJURY [None]
  - LEGAL PROBLEM [None]
